FAERS Safety Report 7765203-7 (Version None)
Quarter: 2011Q3

REPORT INFORMATION
  Report Type: 
  Country: None (occurrence: None)
  Receive Date: 20110921
  Receipt Date: 20110915
  Transmission Date: 20111222
  Serious: Yes (Hospitalization)
  Sender: FDA-Public Use
  Company Number: FR-GLAXOSMITHKLINE-A0872367A

PATIENT
  Sex: Female
  Weight: 82 kg

DRUGS (3)
  1. LAPATINIB [Suspect]
     Indication: HEAD AND NECK CANCER
     Route: 048
     Dates: start: 20100601
  2. CISPLATIN [Suspect]
     Indication: HEAD AND NECK CANCER
     Dosage: 100MGM2 CYCLIC
     Route: 042
     Dates: start: 20100607
  3. RADIOTHERAPY [Suspect]
     Indication: HEAD AND NECK CANCER
     Dosage: 4GY VARIABLE DOSE
     Route: 061
     Dates: start: 20100607

REACTIONS (1)
  - DYSPHAGIA [None]
